FAERS Safety Report 5597042-X (Version None)
Quarter: 2008Q1

REPORT INFORMATION
  Report Type: 
  Country: None (occurrence: None)
  Receive Date: 20080121
  Receipt Date: 20080114
  Transmission Date: 20080703
  Serious: Yes (Other)
  Sender: FDA-Public Use
  Company Number: US-WYE-H02112308

PATIENT
  Sex: Male
  Weight: 75.75 kg

DRUGS (1)
  1. TYGACIL [Suspect]
     Indication: LEG AMPUTATION
     Route: 041
     Dates: start: 20071010, end: 20071010

REACTIONS (3)
  - FEELING ABNORMAL [None]
  - FEELING JITTERY [None]
  - VISION BLURRED [None]
